FAERS Safety Report 13498782 (Version 1)
Quarter: 2017Q2

REPORT INFORMATION
  Report Type: Spontaneous
  Country: US (occurrence: US)
  Receive Date: 20170428
  Receipt Date: 20170428
  Transmission Date: 20170830
  Serious: Yes (Disabling, Other)
  Sender: FDA-Public Use
  Company Number: None

PATIENT
  Age: 42 Year
  Sex: Male
  Weight: 74.25 kg

DRUGS (5)
  1. ETODOLAC. [Concomitant]
     Active Substance: ETODOLAC
  2. GUMMY VITES [Concomitant]
  3. HUMALOG [Concomitant]
     Active Substance: INSULIN LISPRO
  4. ATORVASTATIN 20 MG TABLET [Suspect]
     Active Substance: ATORVASTATIN
     Indication: BLOOD CHOLESTEROL INCREASED
     Dosage: ?          QUANTITY:1 TABLET(S);?
     Route: 048
  5. ENALAPRIL MALEATE. [Concomitant]
     Active Substance: ENALAPRIL MALEATE

REACTIONS (8)
  - Muscular weakness [None]
  - Asthenia [None]
  - Product quality issue [None]
  - Blood creatine phosphokinase increased [None]
  - Myositis [None]
  - Product physical issue [None]
  - Urine odour abnormal [None]
  - Back pain [None]

NARRATIVE: CASE EVENT DATE: 20170418
